FAERS Safety Report 23420821 (Version 3)
Quarter: 2024Q1

REPORT INFORMATION
  Report Type: Spontaneous
  Country: JP (occurrence: JP)
  Receive Date: 20240119
  Receipt Date: 20240228
  Transmission Date: 20240410
  Serious: Yes (Other)
  Sender: FDA-Public Use
  Company Number: JP-TEVA-VS-3136495

PATIENT
  Sex: Female

DRUGS (6)
  1. HYDROCORTISONE [Suspect]
     Active Substance: HYDROCORTISONE
     Indication: Asthma
     Route: 065
     Dates: start: 201710, end: 201906
  2. CORTISONE [Suspect]
     Active Substance: CORTISONE
     Indication: Asthma
     Route: 065
     Dates: end: 201906
  3. CORTISONE [Suspect]
     Active Substance: CORTISONE
     Indication: Asthma
     Route: 065
  4. MEPOLIZUMAB [Suspect]
     Active Substance: MEPOLIZUMAB
     Indication: Asthma
     Route: 065
     Dates: end: 201906
  5. OMALIZUMAB [Suspect]
     Active Substance: OMALIZUMAB
     Indication: Asthma
     Route: 065
     Dates: start: 201706, end: 201906
  6. PREDNISONE [Suspect]
     Active Substance: PREDNISONE
     Indication: Product used for unknown indication
     Route: 041

REACTIONS (2)
  - Multiple drug hypersensitivity [Unknown]
  - Drug ineffective [Unknown]
